FAERS Safety Report 9080078 (Version 2)
Quarter: 2013Q1

REPORT INFORMATION
  Report Type: Spontaneous
  Country: HR (occurrence: HR)
  Receive Date: 20130218
  Receipt Date: 20130226
  Transmission Date: 20140127
  Serious: Yes (Other)
  Sender: FDA-Public Use
  Company Number: PHHY2013HR013554

PATIENT
  Age: 69 Year
  Sex: Female
  Weight: 78 kg

DRUGS (2)
  1. TULIP [Suspect]
     Indication: LIPID METABOLISM DISORDER
     Dosage: 1 DF, QD
     Route: 048
     Dates: start: 201108, end: 201212
  2. AMLOPIN [Concomitant]
     Indication: ESSENTIAL HYPERTENSION
     Dosage: 1 DF, QD
     Route: 048
     Dates: start: 201002

REACTIONS (4)
  - Gait disturbance [Recovered/Resolved]
  - Pain in extremity [Recovered/Resolved]
  - Arthralgia [Recovering/Resolving]
  - Muscle spasms [Recovered/Resolved]
